FAERS Safety Report 10413564 (Version 2)
Quarter: 2014Q4

REPORT INFORMATION
  Report Type: Report from Study
  Country: PL (occurrence: PL)
  Receive Date: 20140827
  Receipt Date: 20141201
  Transmission Date: 20150528
  Serious: No
  Sender: FDA-Public Use
  Company Number: PL-UCBSA-2014009121

PATIENT
  Age: 55 Year
  Sex: Female
  Weight: 85 kg

DRUGS (8)
  1. ACIDUM FOLICUM [Concomitant]
     Active Substance: FOLIC ACID
     Indication: PROPHYLAXIS
     Dosage: 15 MG, WEEKLY (QW)
     Route: 048
     Dates: start: 2012
  2. METYPRED [Concomitant]
     Active Substance: METHYLPREDNISOLONE
     Indication: RHEUMATOID ARTHRITIS
     Dosage: 8 MG, ONCE DAILY (QD)
     Route: 048
     Dates: start: 20130615
  3. VITRUM OSTEOMAG [Concomitant]
     Indication: OSTEOPOROSIS PROPHYLAXIS
     Dosage: 500 MG, ONCE DAILY (QD)
     Route: 048
     Dates: start: 201306
  4. KALIPOZ [Concomitant]
     Active Substance: POTASSIUM CHLORIDE
     Indication: HYPOKALAEMIA
     Dosage: 1 DF, ONCE DAILY (QD)
     Route: 048
     Dates: start: 201209
  5. METHOTREXATE [Concomitant]
     Active Substance: METHOTREXATE
     Indication: RHEUMATOID ARTHRITIS
     Dosage: 25 MG, WEEKLY (QW)
     Route: 048
     Dates: start: 20130220
  6. CERTOLIZUMAB PEGOL RA [Suspect]
     Active Substance: CERTOLIZUMAB PEGOL
     Dosage: 200 MG CZP / 400 MG ADALUIMUMAB , EV 2 WEEKS(QOW)
     Route: 058
     Dates: start: 20130919, end: 20140826
  7. CERTOLIZUMAB PEGOL RA [Suspect]
     Active Substance: CERTOLIZUMAB PEGOL
     Indication: RHEUMATOID ARTHRITIS
     Dosage: 400 MG CZP /400 MG ADALIMUMAB, EVERY 2 WEEKS
     Route: 058
     Dates: start: 20130808, end: 20130909
  8. NOLPAZA [Concomitant]
     Active Substance: PANTOPRAZOLE SODIUM
     Indication: GASTRITIS PROPHYLAXIS
     Dosage: 20 MG, ONCE DAILY (QD)
     Route: 048
     Dates: start: 2011

REACTIONS (1)
  - Latent tuberculosis [Not Recovered/Not Resolved]

NARRATIVE: CASE EVENT DATE: 20140806
